FAERS Safety Report 5055318-9 (Version None)
Quarter: 2006Q3

REPORT INFORMATION
  Report Type: 
  Country: None (occurrence: None)
  Receive Date: 20060714
  Receipt Date: 20060627
  Transmission Date: 20061208
  Serious: Yes (Hospitalization)
  Sender: FDA-Public Use
  Company Number: JP200606003392

PATIENT
  Age: 63 Year
  Sex: Female
  Weight: 70 kg

DRUGS (10)
  1. LISPRO(LISPRO 25LI75NPL) CARTRIDGE [Suspect]
     Indication: DIABETES MELLITUS NON-INSULIN-DEPENDENT
     Dosage: SEE IMAGE
     Dates: start: 20050920, end: 20051111
  2. LISPRO(LISPRO 25LI75NPL) CARTRIDGE [Suspect]
     Indication: DIABETES MELLITUS NON-INSULIN-DEPENDENT
     Dosage: SEE IMAGE
     Dates: start: 20051112, end: 20060216
  3. LASIX  /SWE/  (FUROSEMIDE)  TABLET [Concomitant]
  4. CALCIUM POLYSTYRENE SULFONATE (CALCIUM POLYSTYRENE SULFONATE) JELLY [Concomitant]
  5. DIFLUCAN (FLUCONAZOLE) CAPSULE [Concomitant]
  6. LEVOFLOXACIN [Concomitant]
  7. BACTRIM [Concomitant]
  8. ZANTAC [Concomitant]
  9. PURSENNID/SCH/ (SENNOSIDE A+B, SENNOSIDE A+B CALCIUM) TABLET [Concomitant]
  10. NINJIN-TO (GINSENG) [Concomitant]

REACTIONS (1)
  - PNEUMONIA [None]
